FAERS Safety Report 24243644 (Version 1)
Quarter: 2024Q3

REPORT INFORMATION
  Report Type: Spontaneous
  Country: CN (occurrence: CN)
  Receive Date: 20240823
  Receipt Date: 20240823
  Transmission Date: 20241017
  Serious: Yes (Other)
  Sender: ACCORD
  Company Number: CN-Accord-441855

PATIENT
  Age: 29 Year
  Sex: Male

DRUGS (9)
  1. CISPLATIN [Suspect]
     Active Substance: CISPLATIN
     Indication: Testicular choriocarcinoma
     Dosage: FIRST CHEMOTHERAPY
  2. ETOPOSIDE [Suspect]
     Active Substance: ETOPOSIDE
     Indication: Metastases to retroperitoneum
     Dosage: FIRST CHEMOTHERAPY
  3. PROPRANOLOL [Concomitant]
     Active Substance: PROPRANOLOL HYDROCHLORIDE
     Indication: Heart rate increased
     Dosage: 20 MG 4/DAY
     Route: 048
  4. ETOPOSIDE [Suspect]
     Active Substance: ETOPOSIDE
     Indication: Metastases to lung
     Dosage: FIRST CHEMOTHERAPY
  5. CISPLATIN [Suspect]
     Active Substance: CISPLATIN
     Indication: Metastases to lung
     Dosage: FIRST CHEMOTHERAPY
  6. CISPLATIN [Suspect]
     Active Substance: CISPLATIN
     Indication: Metastases to retroperitoneum
     Dosage: FIRST CHEMOTHERAPY
  7. ETOPOSIDE [Suspect]
     Active Substance: ETOPOSIDE
     Indication: Metastases to liver
     Dosage: FIRST CHEMOTHERAPY
  8. ETOPOSIDE [Suspect]
     Active Substance: ETOPOSIDE
     Indication: Testicular choriocarcinoma
     Dosage: FIRST CHEMOTHERAPY
  9. CISPLATIN [Suspect]
     Active Substance: CISPLATIN
     Indication: Metastases to liver
     Dosage: FIRST CHEMOTHERAPY

REACTIONS (2)
  - Gastrointestinal disorder [Unknown]
  - Haemoptysis [Unknown]
